FAERS Safety Report 13679558 (Version 4)
Quarter: 2017Q4

REPORT INFORMATION
  Report Type: Spontaneous
  Country: US (occurrence: US)
  Receive Date: 20170622
  Receipt Date: 20171219
  Transmission Date: 20180320
  Serious: Yes (Hospitalization)
  Sender: FDA-Public Use
  Company Number: US-ASTRAZENECA-2017SE64978

PATIENT
  Age: 1032 Month
  Sex: Male
  Weight: 54.4 kg

DRUGS (1)
  1. TUDORZA PRESSAIR [Suspect]
     Active Substance: ACLIDINIUM BROMIDE
     Indication: CHRONIC OBSTRUCTIVE PULMONARY DISEASE
     Route: 055

REACTIONS (11)
  - Dyspnoea [Unknown]
  - Pulmonary oedema [Unknown]
  - Secretion discharge [Unknown]
  - Muscular weakness [Unknown]
  - Hypoacusis [Unknown]
  - Device malfunction [Unknown]
  - Gait disturbance [Unknown]
  - Aphonia [Unknown]
  - Malaise [Unknown]
  - Speech disorder [Unknown]
  - Drug dose omission [Unknown]

NARRATIVE: CASE EVENT DATE: 201706
